FAERS Safety Report 7525328-8 (Version None)
Quarter: 2011Q2

REPORT INFORMATION
  Report Type: 
  Country: None (occurrence: None)
  Receive Date: 20110602
  Receipt Date: 20110602
  Transmission Date: 20111010
  Serious: No
  Sender: FDA-Public Use
  Company Number: None

PATIENT
  Age: 41 Year
  Sex: Female
  Weight: 86.1834 kg

DRUGS (1)
  1. AMPHETAMINE MIXED ER 30 MG BARR [Suspect]
     Indication: ATTENTION DEFICIT/HYPERACTIVITY DISORDER
     Dosage: 30MG DAILY PO
     Route: 048
     Dates: start: 20110118, end: 20110517

REACTIONS (5)
  - BLOOD GLUCOSE FLUCTUATION [None]
  - PARAESTHESIA [None]
  - PRODUCT FORMULATION ISSUE [None]
  - BLOOD PRESSURE INCREASED [None]
  - MIGRAINE [None]
